FAERS Safety Report 9705293 (Version 3)
Quarter: 2013Q4

REPORT INFORMATION
  Report Type: Spontaneous
  Country: JP (occurrence: JP)
  Receive Date: 20131122
  Receipt Date: 20131203
  Transmission Date: 20140711
  Serious: Yes (Hospitalization)
  Sender: FDA-Public Use
  Company Number: JP-SUCAMPO PHARMA AMERICAS, INC-SPI201300784

PATIENT
  Age: 68 Year
  Sex: Male

DRUGS (11)
  1. AMITIZA [Suspect]
     Indication: CONSTIPATION
     Dosage: 24 MCG, BID
     Route: 048
     Dates: start: 20131024, end: 20131024
  2. AMITIZA [Suspect]
     Dosage: 24 MCG, QD
     Route: 048
     Dates: start: 20131025, end: 20131028
  3. AMITIZA [Suspect]
     Dosage: 24 MCG BID
     Route: 048
     Dates: start: 20131029
  4. ABRAXANE [Concomitant]
     Indication: GASTRIC CANCER
     Dosage: 400 MG, QD
     Route: 042
     Dates: start: 20131024
  5. MAGMITT [Suspect]
     Indication: CONSTIPATION
     Dosage: 330 MG, TID
     Route: 048
     Dates: start: 20131030
  6. GANATON [Suspect]
     Indication: GASTROINTESTINAL MOTILITY DISORDER
     Dosage: 50 MG, TID
     Route: 048
     Dates: start: 20131030
  7. GANATON [Suspect]
     Dosage: UNK
     Dates: start: 20131030
  8. KENEI G [Concomitant]
     Indication: CONSTIPATION
     Dosage: 60 ML, QD
     Route: 054
     Dates: start: 20131108, end: 20131108
  9. KENEI G [Concomitant]
     Dosage: 120 ML, QD
     Route: 054
     Dates: start: 20131030, end: 20131030
  10. KENEI G [Concomitant]
     Dosage: 120 ML, QD
     Route: 054
     Dates: start: 20131024, end: 20131024
  11. PURSENNID [Concomitant]
     Indication: CONSTIPATION
     Dosage: UNK
     Dates: start: 20131023

REACTIONS (5)
  - Dehydration [Recovering/Resolving]
  - Constipation [Recovering/Resolving]
  - Decreased appetite [Recovering/Resolving]
  - Nausea [Recovering/Resolving]
  - Diarrhoea [Recovering/Resolving]
